FAERS Safety Report 17338388 (Version 3)
Quarter: 2020Q1

REPORT INFORMATION
  Report Type: Report from Study
  Country: PK (occurrence: PK)
  Receive Date: 20200129
  Receipt Date: 20200206
  Transmission Date: 20200409
  Serious: Yes (Death)
  Sender: FDA-Public Use
  Company Number: NVSC2020PK021858

PATIENT
  Sex: Male

DRUGS (1)
  1. REVOLADE [Suspect]
     Active Substance: ELTROMBOPAG
     Indication: IMMUNE THROMBOCYTOPENIC PURPURA
     Dosage: 50 MG, QD
     Route: 048
     Dates: start: 20191221

REACTIONS (7)
  - Fatigue [Fatal]
  - Oedema peripheral [Fatal]
  - Pulmonary oedema [Fatal]
  - Cardiopulmonary failure [Fatal]
  - Dyspnoea [Fatal]
  - Palpitations [Fatal]
  - Therapy non-responder [Unknown]
